FAERS Safety Report 4653429-0 (Version None)
Quarter: 2005Q2

REPORT INFORMATION
  Report Type: 
  Country: None (occurrence: None)
  Receive Date: 20050503
  Receipt Date: 20050425
  Transmission Date: 20051028
  Serious: Yes (Other)
  Sender: FDA-Public Use
  Company Number: AU-2005-000437

PATIENT
  Age: 28 Year
  Sex: Female

DRUGS (1)
  1. MIREAN (LEVONORGESTREL) IUS [Suspect]
     Indication: CONTRACEPTION
     Dosage: 20 MICROG/DAY, CONT, INTRA-UTERINE
     Route: 015
     Dates: start: 20040701, end: 20050301

REACTIONS (1)
  - BIPOLAR DISORDER [None]
